FAERS Safety Report 8962137 (Version 2)
Quarter: 2013Q1

REPORT INFORMATION
  Report Type: Spontaneous
  Country: US (occurrence: US)
  Receive Date: 20121212
  Receipt Date: 20130111
  Transmission Date: 20140127
  Serious: No
  Sender: FDA-Public Use
  Company Number: US-PFIZER INC-2012308457

PATIENT
  Age: 21 Year
  Sex: Female
  Weight: 79.37 kg

DRUGS (5)
  1. GENOTROPIN [Suspect]
     Indication: GROWTH HORMONE DEFICIENCY
     Dosage: 2 MG, 6X/WEEK
     Route: 030
     Dates: start: 20121115
  2. HYDROCORTISONE [Concomitant]
     Indication: ADRENAL INSUFFICIENCY
     Dosage: UNK
  3. DDAVP [Concomitant]
     Indication: ADRENAL INSUFFICIENCY
     Dosage: UNK
  4. THYROXINE [Concomitant]
     Indication: ADRENAL INSUFFICIENCY
     Dosage: UNK
  5. LUTERA [Concomitant]
     Indication: ADRENAL INSUFFICIENCY
     Dosage: UNK

REACTIONS (3)
  - Headache [Recovered/Resolved]
  - Dizziness [Recovered/Resolved]
  - Incorrect route of drug administration [Unknown]
